FAERS Safety Report 22037481 (Version 1)
Quarter: 2023Q1

REPORT INFORMATION
  Report Type: Spontaneous
  Country: US (occurrence: US)
  Receive Date: 20230226
  Receipt Date: 20230226
  Transmission Date: 20230418
  Serious: Yes (Other)
  Sender: FDA-Public Use
  Company Number: US-Accord-266321

PATIENT
  Sex: Male

DRUGS (13)
  1. BUSPIRONE HYDROCHLORIDE [Suspect]
     Active Substance: BUSPIRONE HYDROCHLORIDE
     Indication: Depression
  2. WELLBUTRIN [Suspect]
     Active Substance: BUPROPION HYDROCHLORIDE
  3. TEGRETOL [Suspect]
     Active Substance: CARBAMAZEPINE
  4. RISPERIDONE [Suspect]
     Active Substance: RISPERIDONE
  5. SEROQUEL [Suspect]
     Active Substance: QUETIAPINE FUMARATE
  6. ZOLOFT [Suspect]
     Active Substance: SERTRALINE HYDROCHLORIDE
  7. PAXIL [Suspect]
     Active Substance: PAROXETINE HYDROCHLORIDE
  8. PROZAC [Suspect]
     Active Substance: FLUOXETINE HYDROCHLORIDE
  9. GABAPENTIN [Suspect]
     Active Substance: GABAPENTIN
  10. XANAX [Suspect]
     Active Substance: ALPRAZOLAM
  11. LAMICTAL [Suspect]
     Active Substance: LAMOTRIGINE
  12. LORAZEPAM [Suspect]
     Active Substance: LORAZEPAM
  13. KLONOPIN [Suspect]
     Active Substance: CLONAZEPAM

REACTIONS (8)
  - Depression [Unknown]
  - Suicidal ideation [Unknown]
  - Feeling abnormal [Unknown]
  - Asthenia [Unknown]
  - Lethargy [Unknown]
  - Weight increased [Unknown]
  - Drug ineffective [Unknown]
  - Off label use [Unknown]
